FAERS Safety Report 25849463 (Version 1)
Quarter: 2025Q3

REPORT INFORMATION
  Report Type: Spontaneous
  Country: US (occurrence: US)
  Receive Date: 20250926
  Receipt Date: 20250926
  Transmission Date: 20251021
  Serious: No
  Sender: ALEXION PHARMACEUTICALS
  Company Number: US-AstraZeneca-CH-00956377A

PATIENT
  Age: 72 Year
  Sex: Male

DRUGS (2)
  1. TAGRISSO [Suspect]
     Active Substance: OSIMERTINIB
     Indication: Non-small cell lung cancer
     Route: 065
     Dates: start: 202509, end: 20250918
  2. ATORVASTATIN [Concomitant]
     Active Substance: ATORVASTATIN
     Route: 065

REACTIONS (2)
  - Muscular weakness [Unknown]
  - Dysstasia [Recovering/Resolving]

NARRATIVE: CASE EVENT DATE: 20250901
